FAERS Safety Report 14534990 (Version 1)
Quarter: 2018Q1

REPORT INFORMATION
  Report Type: Report from Study
  Country: DE (occurrence: DE)
  Receive Date: 20180215
  Receipt Date: 20180215
  Transmission Date: 20180509
  Serious: Yes (Other)
  Sender: FDA-Public Use
  Company Number: DE-TEVA-2018-DE-856823

PATIENT
  Age: 80 Year
  Sex: Female
  Weight: 100 kg

DRUGS (10)
  1. SULPIRID [Concomitant]
     Active Substance: SULPIRIDE
     Dosage: 150 MILLIGRAM DAILY;
     Route: 048
     Dates: start: 20130701
  2. CARBOPLATIN. [Suspect]
     Active Substance: CARBOPLATIN
     Indication: BRONCHIAL CARCINOMA
     Dosage: AUC 5
     Route: 042
     Dates: start: 20130822
  3. VINORELBINE [Suspect]
     Active Substance: VINORELBINE\VINORELBINE TARTRATE
     Dosage: 65 MG ON DAY 1 AND 8
     Route: 042
     Dates: start: 20130829
  4. AVASTIN [Suspect]
     Active Substance: BEVACIZUMAB
     Indication: BRONCHIAL CARCINOMA
     Route: 042
     Dates: start: 20130822, end: 20130822
  5. AVASTIN [Suspect]
     Active Substance: BEVACIZUMAB
     Dosage: 750MG
     Route: 042
     Dates: start: 20130801, end: 20130801
  6. PREDNISOLON [Concomitant]
     Active Substance: PREDNISOLONE
     Dosage: 20 MILLIGRAM DAILY;
     Route: 048
  7. RAMIPRIL. [Concomitant]
     Active Substance: RAMIPRIL
     Indication: HYPERTENSION
     Dosage: 10 MILLIGRAM DAILY;
     Route: 048
  8. BISOPROLOL [Concomitant]
     Active Substance: BISOPROLOL
     Indication: HYPERTENSION
     Dosage: 5 MILLIGRAM DAILY; DOSE- 1.5 (1-0-0.5) DF
     Route: 048
  9. VINORELBINE [Suspect]
     Active Substance: VINORELBINE\VINORELBINE TARTRATE
     Dosage: 65 MG ON DAY 1 AND 8
     Route: 042
     Dates: start: 20130801, end: 20130808
  10. CARBOPLATIN. [Suspect]
     Active Substance: CARBOPLATIN
     Dosage: AUC 5
     Route: 042
     Dates: start: 20130801, end: 20130801

REACTIONS (2)
  - Pulmonary embolism [Recovering/Resolving]
  - Hypertension [Recovering/Resolving]

NARRATIVE: CASE EVENT DATE: 20130801
